FAERS Safety Report 21906204 (Version 1)
Quarter: 2023Q1

REPORT INFORMATION
  Report Type: Spontaneous
  Country: PT (occurrence: PT)
  Receive Date: 20230125
  Receipt Date: 20230125
  Transmission Date: 20230418
  Serious: Yes (Other)
  Sender: FDA-Public Use
  Company Number: None

PATIENT
  Age: 75 Year
  Sex: Female

DRUGS (12)
  1. CILOSTAZOL [Interacting]
     Active Substance: CILOSTAZOL
     Indication: Intermittent claudication
     Dosage: HALF A TABLET EVERY 12 HOURS (ON 26/12 - AFTER REINTRODUCTION, THE PATIENT ONLY TOOK 1 DOSE IN THE M
     Route: 048
     Dates: start: 20221226, end: 20221226
  2. CILOSTAZOL [Interacting]
     Active Substance: CILOSTAZOL
     Dosage: 50 MG, BID
     Route: 048
     Dates: start: 20221124, end: 20221225
  3. CLOPIDOGREL BISULFATE [Interacting]
     Active Substance: CLOPIDOGREL BISULFATE
     Dosage: UNK
     Route: 048
     Dates: start: 20221123
  4. ACETAMINOPHEN [Concomitant]
     Active Substance: ACETAMINOPHEN
     Dosage: UNK
  5. ATORVASTATIN CALCIUM [Concomitant]
     Active Substance: ATORVASTATIN CALCIUM
     Dosage: UNK
     Route: 048
     Dates: start: 20221123
  6. QUETIAPINE [Concomitant]
     Active Substance: QUETIAPINE
     Dosage: UNK
     Route: 048
  7. PANTOPRAZOL ALTER [Concomitant]
     Dosage: UNK
     Route: 048
     Dates: start: 20221124
  8. RENIDUR [Concomitant]
     Dosage: UNK
     Route: 048
  9. MEXAZOLAM [Concomitant]
     Active Substance: MEXAZOLAM
     Dosage: UNK
     Route: 048
  10. NORVASC [Concomitant]
     Active Substance: AMLODIPINE BESYLATE
     Dosage: UNK
     Route: 048
  11. MIRTAZAPINA ALTER [Concomitant]
     Dosage: UNK
     Route: 048
  12. BETAHISTINA CLORHIDRATO [Concomitant]
     Dosage: UNK
     Route: 048

REACTIONS (3)
  - Chest pain [Recovered/Resolved]
  - Drug interaction [Recovered/Resolved]
  - Haemoptysis [Recovered/Resolved]
